FAERS Safety Report 9221059 (Version 2)
Quarter: 2013Q2

REPORT INFORMATION
  Report Type: Spontaneous
  Country: JP (occurrence: JP)
  Receive Date: 20130409
  Receipt Date: 20130529
  Transmission Date: 20140414
  Serious: Yes (Hospitalization)
  Sender: FDA-Public Use
  Company Number: JP-BAXTER-2013BAX012902

PATIENT
  Age: 20 Year
  Sex: Female

DRUGS (26)
  1. CYCLOPHOSPHAMIDE FOR INJECTION, USP [Suspect]
     Indication: SYSTEMIC LUPUS ERYTHEMATOSUS
     Route: 041
     Dates: start: 20121211, end: 20121211
  2. CYCLOPHOSPHAMIDE FOR INJECTION, USP [Suspect]
     Indication: ALLERGY TEST
     Route: 041
     Dates: start: 20130108, end: 20130108
  3. CYCLOPHOSPHAMIDE FOR INJECTION, USP [Suspect]
     Route: 041
     Dates: start: 20130206, end: 20130206
  4. CYCLOPHOSPHAMIDE FOR INJECTION, USP [Suspect]
     Route: 041
     Dates: start: 20130311, end: 20130311
  5. CYCLOPHOSPHAMIDE FOR INJECTION, USP [Suspect]
     Route: 058
     Dates: start: 20130304, end: 20130304
  6. CYCLOPHOSPHAMIDE FOR INJECTION, USP [Suspect]
     Route: 041
     Dates: start: 20130307, end: 20130307
  7. UROMITEXAN [Concomitant]
     Indication: ALLERGY TEST
     Route: 065
     Dates: start: 20121211, end: 20121211
  8. UROMITEXAN [Concomitant]
     Indication: PRODUCT USED FOR UNKNOWN INDICATION
     Route: 058
     Dates: start: 20130304, end: 20130304
  9. UROMITEXAN [Concomitant]
     Route: 041
     Dates: start: 20130307, end: 20130307
  10. UROMITEXAN [Concomitant]
     Route: 041
     Dates: start: 20130108, end: 20130108
  11. UROMITEXAN [Concomitant]
     Route: 041
     Dates: start: 20130206, end: 20130206
  12. UROMITEXAN [Concomitant]
     Route: 041
     Dates: start: 20130311, end: 20130311
  13. PREDONINE [Concomitant]
     Indication: PRODUCT USED FOR UNKNOWN INDICATION
     Route: 065
  14. ISOTONIC SODIUM CHLORIDE SOLUTION [Concomitant]
     Indication: PRODUCT USED FOR UNKNOWN INDICATION
     Route: 065
  15. SOLITA-T NO.3 [Concomitant]
     Indication: PRODUCT USED FOR UNKNOWN INDICATION
     Route: 065
  16. LASIX [Concomitant]
     Indication: PRODUCT USED FOR UNKNOWN INDICATION
     Route: 065
  17. NEORAL [Concomitant]
     Indication: PRODUCT USED FOR UNKNOWN INDICATION
     Route: 065
  18. REVATIO [Concomitant]
     Indication: PRODUCT USED FOR UNKNOWN INDICATION
     Route: 065
  19. MICARDIS [Concomitant]
     Indication: PRODUCT USED FOR UNKNOWN INDICATION
     Route: 065
  20. CARELOAD LA [Concomitant]
     Indication: PRODUCT USED FOR UNKNOWN INDICATION
     Route: 065
  21. WARFARIN [Concomitant]
     Indication: PRODUCT USED FOR UNKNOWN INDICATION
     Route: 065
  22. LIPITOR [Concomitant]
     Indication: PRODUCT USED FOR UNKNOWN INDICATION
     Route: 065
  23. MUCOSTA [Concomitant]
     Indication: PRODUCT USED FOR UNKNOWN INDICATION
     Route: 065
  24. BACTRAMIN [Concomitant]
     Indication: PRODUCT USED FOR UNKNOWN INDICATION
     Route: 065
  25. PARIET [Concomitant]
     Indication: PRODUCT USED FOR UNKNOWN INDICATION
     Route: 065
  26. HARISON [Concomitant]
     Indication: PRODUCT USED FOR UNKNOWN INDICATION
     Route: 065

REACTIONS (2)
  - Pyrexia [Recovered/Resolved]
  - Arthralgia [Recovered/Resolved]
